FAERS Safety Report 17295741 (Version 1)
Quarter: 2020Q1

REPORT INFORMATION
  Report Type: Report from Study
  Country: US (occurrence: US)
  Receive Date: 20200121
  Receipt Date: 20200121
  Transmission Date: 20200409
  Serious: No
  Sender: FDA-Public Use
  Company Number: NVSC2020US007488

PATIENT
  Age: 40 Year
  Sex: Male

DRUGS (1)
  1. ENTRESTO [Suspect]
     Active Substance: SACUBITRIL\VALSARTAN
     Indication: CARDIAC FAILURE CONGESTIVE
     Dosage: 1 DF (SACUBITRIL 49 MG/VALSARTAN 51MG), BID
     Route: 048
     Dates: start: 20191126

REACTIONS (5)
  - Chest discomfort [Unknown]
  - Nasal congestion [Unknown]
  - Cough [Unknown]
  - Nasopharyngitis [Unknown]
  - Paranasal sinus discomfort [Unknown]

NARRATIVE: CASE EVENT DATE: 20200110
